FAERS Safety Report 24110363 (Version 1)
Quarter: 2024Q3

REPORT INFORMATION
  Report Type: Spontaneous
  Country: FR (occurrence: FR)
  Receive Date: 20240718
  Receipt Date: 20240718
  Transmission Date: 20241016
  Serious: Yes (Hospitalization)
  Sender: JOHNSON AND JOHNSON
  Company Number: None

PATIENT
  Age: 27 Year
  Sex: Male

DRUGS (3)
  1. RISPERDAL [Suspect]
     Active Substance: RISPERIDONE
     Indication: Delusion
     Route: 048
     Dates: start: 20240603, end: 20240610
  2. CHLORPROMAZINE [Suspect]
     Active Substance: CHLORPROMAZINE
     Indication: Anxiolytic therapy
     Route: 048
     Dates: start: 20240531, end: 20240610
  3. VALIUM [Suspect]
     Active Substance: DIAZEPAM
     Indication: Sedative therapy
     Route: 048
     Dates: start: 20240531, end: 20240610

REACTIONS (1)
  - Hepatitis [Recovering/Resolving]

NARRATIVE: CASE EVENT DATE: 20240610
